FAERS Safety Report 25111141 (Version 1)
Quarter: 2025Q1

REPORT INFORMATION
  Report Type: Spontaneous
  Country: US (occurrence: US)
  Receive Date: 20250324
  Receipt Date: 20250324
  Transmission Date: 20250409
  Serious: Yes (Hospitalization, Other)
  Sender: NOVITIUM PHARMA
  Company Number: US-NOVITIUMPHARMA-2025USNVP00735

PATIENT
  Age: 21 Year
  Sex: Female

DRUGS (5)
  1. LIDOCAINE HYDROCHLORIDE [Suspect]
     Active Substance: LIDOCAINE HYDROCHLORIDE
     Indication: Epidural analgesia
     Route: 040
  2. BUPIVACAINE [Concomitant]
     Active Substance: BUPIVACAINE
     Indication: Epidural analgesia
     Route: 040
  3. BUPIVACAINE\FENTANYL [Concomitant]
     Active Substance: BUPIVACAINE\FENTANYL
     Indication: Epidural analgesia
  4. LIDOCAINE HYDROCHLORIDE AND EPINEPHRINE BITARTRATE [Concomitant]
     Active Substance: EPINEPHRINE BITARTRATE\LIDOCAINE HYDROCHLORIDE
     Indication: Epidural analgesia
  5. LIDOCAINE HYDROCHLORIDE AND EPINEPHRINE BITARTRATE [Concomitant]
     Active Substance: EPINEPHRINE BITARTRATE\LIDOCAINE HYDROCHLORIDE

REACTIONS (2)
  - Horner^s syndrome [Unknown]
  - Maternal exposure during delivery [Unknown]
